FAERS Safety Report 4785091-0 (Version None)
Quarter: 2005Q3

REPORT INFORMATION
  Report Type: 
  Country: None (occurrence: None)
  Receive Date: 20050928
  Receipt Date: 20050912
  Transmission Date: 20060218
  Serious: Yes (Hospitalization, Disabling)
  Sender: FDA-Public Use
  Company Number: 2005-01901

PATIENT
  Age: 73 Year
  Sex: Male
  Weight: 81 kg

DRUGS (3)
  1. VELCADE [Suspect]
     Indication: MULTIPLE MYELOMA
     Dosage: 1.30 MG/M2, 2/WEEK, INTRAVENOUS
     Route: 042
     Dates: start: 20050719, end: 20050902
  2. MELPHALAN (MELPHALAN VIAL [Suspect]
     Indication: MULTIPLE MYELOMA
     Dosage: 9.00 MG/M2, QD, ORAL
     Route: 048
     Dates: start: 20050719, end: 20050902
  3. PREDNISONE [Suspect]
     Indication: MULTIPLE MYELOMA
     Dosage: 60.00 MG/M2, QD, ORAL
     Route: 048
     Dates: start: 20050719, end: 20050902

REACTIONS (6)
  - ACTIVITIES OF DAILY LIVING IMPAIRED [None]
  - ANOREXIA [None]
  - DYSPNOEA [None]
  - HYPOXIA [None]
  - MALAISE [None]
  - WEIGHT DECREASED [None]
